FAERS Safety Report 4633142-6 (Version None)
Quarter: 2005Q2

REPORT INFORMATION
  Report Type: 
  Country: None (occurrence: None)
  Receive Date: 20050412
  Receipt Date: 20050405
  Transmission Date: 20051028
  Serious: Yes (Disabling)
  Sender: FDA-Public Use
  Company Number: JP-GLAXOSMITHKLINE-B0377251A

PATIENT
  Age: 56 Year
  Sex: Male

DRUGS (2)
  1. VALTREX [Suspect]
     Indication: HERPES ZOSTER
     Dosage: 500MG PER DAY
     Route: 048
     Dates: start: 20050331, end: 20050404
  2. LOXONIN [Concomitant]
     Route: 048

REACTIONS (3)
  - BALANCE DISORDER [None]
  - DELIRIUM [None]
  - HALLUCINATION [None]
